FAERS Safety Report 17075955 (Version 3)
Quarter: 2020Q1

REPORT INFORMATION
  Report Type: Spontaneous
  Country: US (occurrence: US)
  Receive Date: 20191126
  Receipt Date: 20200319
  Transmission Date: 20200409
  Serious: Yes (Hospitalization, Other)
  Sender: FDA-Public Use
  Company Number: US-GILEAD-2019-0439498

PATIENT
  Age: 55 Year
  Sex: Male
  Weight: 68.03 kg

DRUGS (90)
  1. COMPLERA [Suspect]
     Active Substance: EMTRICITABINE\RILPIVIRINE HYDROCHLORIDE\TENOFOVIR DISOPROXIL FUMARATE
     Indication: HIV INFECTION
     Dosage: UNK
     Route: 048
     Dates: start: 201307
  2. CALCITRIOL. [Concomitant]
     Active Substance: CALCITRIOL
  3. TRINTELLIX [Concomitant]
     Active Substance: VORTIOXETINE HYDROBROMIDE
  4. CEPHALEXIN [CEFALEXIN] [Concomitant]
     Active Substance: CEPHALEXIN
  5. NORTRIPTYLINE HCL [Concomitant]
     Active Substance: NORTRIPTYLINE HYDROCHLORIDE
  6. DIPHENOXYLATE HYDROCHLORIDE AND ATROPINE SULFATE [Concomitant]
     Active Substance: ATROPINE SULFATE\DIPHENOXYLATE HYDROCHLORIDE
  7. SUPRAX [Concomitant]
     Active Substance: CEFIXIME
  8. ALLOPURINOL. [Concomitant]
     Active Substance: ALLOPURINOL
  9. VIIBRYD [Concomitant]
     Active Substance: VILAZODONE HYDROCHLORIDE
  10. STRIBILD [Suspect]
     Active Substance: COBICISTAT\ELVITEGRAVIR\EMTRICITABINE\TENOFOVIR DISOPROXIL FUMARATE
     Indication: HIV INFECTION
     Dosage: UNK
     Route: 048
     Dates: start: 20130612, end: 20130719
  11. KETOCONAZOLE. [Concomitant]
     Active Substance: KETOCONAZOLE
  12. FLUTICASONE PROPIONATE. [Concomitant]
     Active Substance: FLUTICASONE PROPIONATE
  13. HYDRALAZINE [Concomitant]
     Active Substance: HYDRALAZINE HYDROCHLORIDE
  14. NUVIGIL [Concomitant]
     Active Substance: ARMODAFINIL
  15. CICLOPIROX. [Concomitant]
     Active Substance: CICLOPIROX
  16. LOVAZA [Concomitant]
     Active Substance: OMEGA-3-ACID ETHYL ESTERS
  17. EPZICOM [Concomitant]
     Active Substance: ABACAVIR SULFATE\LAMIVUDINE
     Indication: HIV INFECTION
     Dosage: UNK
     Dates: end: 2013
  18. VIAGRA [Concomitant]
     Active Substance: SILDENAFIL CITRATE
  19. FLUVIRIN [INFLUENZA VACCINE INACT SAG 3V] [Concomitant]
     Dosage: UNK
     Dates: start: 20141108
  20. ISENTRESS [Concomitant]
     Active Substance: RALTEGRAVIR POTASSIUM
     Dosage: UNK
     Dates: end: 2013
  21. DIAZEPAM. [Concomitant]
     Active Substance: DIAZEPAM
  22. AZITHROMYCIN ANHYDROUS. [Concomitant]
     Active Substance: AZITHROMYCIN ANHYDROUS
  23. MOMETASONE FUROATE. [Concomitant]
     Active Substance: MOMETASONE FUROATE
  24. MOVIPREP [Concomitant]
     Active Substance: ASCORBIC ACID\POLYETHYLENE GLYCOL 3350\POTASSIUM CHLORIDE\SODIUM ASCORBATE\SODIUM CHLORIDE\SODIUM SULFATE
  25. BUPROPION HYDROCHLORIDE XL [Concomitant]
     Active Substance: BUPROPION HYDROCHLORIDE
  26. TRIAMTERENE AND HYDROCHLOROTHIAZIDE [Concomitant]
     Active Substance: HYDROCHLOROTHIAZIDE\TRIAMTERENE
  27. PRAVASTATIN SODIUM. [Concomitant]
     Active Substance: PRAVASTATIN SODIUM
  28. SULFAMETHOXAZOLE;TRIMETHOPRIM [Concomitant]
     Active Substance: SULFAMETHOXAZOLE\TRIMETHOPRIM
  29. HYDROMORPHONE [Concomitant]
     Active Substance: HYDROMORPHONE
  30. IBUPROFEN. [Concomitant]
     Active Substance: IBUPROFEN
  31. ABACAVIR. [Concomitant]
     Active Substance: ABACAVIR
  32. ANTIPYRINE;BENZOCAINE [Concomitant]
  33. ULORIC [Concomitant]
     Active Substance: FEBUXOSTAT
     Dosage: UNK
     Dates: start: 20190218
  34. PROAIR HFA [Concomitant]
     Active Substance: ALBUTEROL SULFATE
     Dosage: UNK
     Dates: start: 20190218
  35. MYTESI [Concomitant]
     Active Substance: CROFELEMER
  36. LISINOPRIL. [Concomitant]
     Active Substance: LISINOPRIL
  37. NALOXONE [Concomitant]
     Active Substance: NALOXONE
  38. BACLOFEN. [Concomitant]
     Active Substance: BACLOFEN
  39. VENLAFAXINE HCL [Concomitant]
     Active Substance: VENLAFAXINE HYDROCHLORIDE
  40. TRIUMEQ [Concomitant]
     Active Substance: ABACAVIR SULFATE\DOLUTEGRAVIR SODIUM\LAMIVUDINE
  41. CHANTIX [Concomitant]
     Active Substance: VARENICLINE TARTRATE
  42. PROMETHAZINE [Concomitant]
     Active Substance: PROMETHAZINE HYDROCHLORIDE
  43. TOPIRAMATE. [Concomitant]
     Active Substance: TOPIRAMATE
  44. DEXILANT [Concomitant]
     Active Substance: DEXLANSOPRAZOLE
     Dosage: UNK
     Dates: start: 20190218
  45. GABAPENTIN. [Concomitant]
     Active Substance: GABAPENTIN
     Dosage: UNK
     Dates: start: 20190218
  46. LAMIVUDINE. [Concomitant]
     Active Substance: LAMIVUDINE
     Dosage: UNK
     Dates: start: 2017
  47. METOPROLOL SUCCINATE. [Concomitant]
     Active Substance: METOPROLOL SUCCINATE
     Dosage: UNK
     Dates: start: 20140203
  48. PREDNISONE. [Concomitant]
     Active Substance: PREDNISONE
  49. BUPRENORPHINE. [Concomitant]
     Active Substance: BUPRENORPHINE
  50. METHYLPREDNISOLONE. [Concomitant]
     Active Substance: METHYLPREDNISOLONE
  51. PRISTIQ EXTENDED-RELEASE [Concomitant]
     Active Substance: DESVENLAFAXINE SUCCINATE
  52. OXYCONTIN [Concomitant]
     Active Substance: OXYCODONE HYDROCHLORIDE
  53. AMLODIPINE BESYLATE. [Concomitant]
     Active Substance: AMLODIPINE BESYLATE
  54. TRICOR [Concomitant]
     Active Substance: FENOFIBRATE
  55. PANTOPRAZOLE SODIUM. [Concomitant]
     Active Substance: PANTOPRAZOLE SODIUM
  56. CIPRODEX [Concomitant]
     Active Substance: CIPROFLOXACIN HYDROCHLORIDE\DEXAMETHASONE
  57. OXYCODONE HYDROCHLORIDE. [Concomitant]
     Active Substance: OXYCODONE HYDROCHLORIDE
  58. ELIQUIS [Concomitant]
     Active Substance: APIXABAN
  59. FLUBLOK QUADRIVALENT [Concomitant]
     Dosage: UNK
     Dates: start: 20181105, end: 20181105
  60. NORDITROPIN [Concomitant]
     Active Substance: SOMATROPIN
  61. FAMOTIDINE. [Concomitant]
     Active Substance: FAMOTIDINE
  62. DOXYCYCLINE HYCLATE. [Concomitant]
     Active Substance: DOXYCYCLINE HYCLATE
  63. DIPHENHYDRAMINE;HYDROCORTISONE;LIDOCAINE;NYSTATIN;TETRACYCLINE [Concomitant]
  64. ACYCLOVIR [ACICLOVIR] [Concomitant]
     Active Substance: ACYCLOVIR
  65. PREZISTA [Concomitant]
     Active Substance: DARUNAVIR ETHANOLATE
     Dosage: UNK
     Dates: start: 2017
  66. ISENTRESS [Concomitant]
     Active Substance: RALTEGRAVIR POTASSIUM
     Dosage: UNK
     Dates: start: 20131122
  67. ISENTRESS [Concomitant]
     Active Substance: RALTEGRAVIR POTASSIUM
     Dosage: UNK
     Dates: start: 2017
  68. VALACYCLOVIR [Concomitant]
     Active Substance: VALACYCLOVIR HYDROCHLORIDE
  69. MUPIROCIN. [Concomitant]
     Active Substance: MUPIROCIN
  70. AMMONIUM LACTATE. [Concomitant]
     Active Substance: AMMONIUM LACTATE
  71. NORCO [Concomitant]
     Active Substance: ACETAMINOPHEN\HYDROCODONE BITARTRATE
  72. TRANSDERM SCOP [Concomitant]
     Active Substance: SCOPOLAMINE
  73. REXULTI [Concomitant]
     Active Substance: BREXPIPRAZOLE
  74. LIDOCAINE;PRILOCAINE [Concomitant]
  75. ABILIFY [Concomitant]
     Active Substance: ARIPIPRAZOLE
  76. ANDROGEL [Concomitant]
     Active Substance: TESTOSTERONE
  77. LEVOFLOXACIN. [Concomitant]
     Active Substance: LEVOFLOXACIN
  78. FENTANYL. [Concomitant]
     Active Substance: FENTANYL
  79. GENVOYA [Concomitant]
     Active Substance: COBICISTAT\ELVITEGRAVIR\EMTRICITABINE\TENOFOVIR ALAFENAMIDE FUMARATE
     Dosage: 1 DOSAGE FORM, QD
     Route: 048
     Dates: start: 201602, end: 2017
  80. NORVIR [Concomitant]
     Active Substance: RITONAVIR
     Dosage: UNK
     Dates: start: 2017
  81. FELODIPINE. [Concomitant]
     Active Substance: FELODIPINE
     Dosage: UNK
     Dates: start: 20131122
  82. CIPROFLOXACIN. [Concomitant]
     Active Substance: CIPROFLOXACIN
  83. TRAZODONE [Concomitant]
     Active Substance: TRAZODONE HYDROCHLORIDE
  84. EVZIO [Concomitant]
     Active Substance: NALOXONE HYDROCHLORIDE
  85. METHADONE HCL [Concomitant]
     Active Substance: METHADONE HYDROCHLORIDE
  86. ESCITALOPRAM [Concomitant]
     Active Substance: ESCITALOPRAM OXALATE
  87. INTELENCE [Concomitant]
     Active Substance: ETRAVIRINE
  88. RENVELA [Concomitant]
     Active Substance: SEVELAMER CARBONATE
  89. FLUVIRIN [INFLUENZA VACCINE INACT SAG 3V] [Concomitant]
     Dosage: UNK
     Dates: start: 20131017
  90. PROBIOTICS NOS [Concomitant]
     Active Substance: PROBIOTICS NOS

REACTIONS (9)
  - Economic problem [Unknown]
  - Acute kidney injury [Not Recovered/Not Resolved]
  - Anhedonia [Unknown]
  - Chronic kidney disease [Not Recovered/Not Resolved]
  - Osteoporosis [Not Recovered/Not Resolved]
  - Pain [Unknown]
  - Anxiety [Unknown]
  - Renal tubular necrosis [Unknown]
  - Emotional distress [Unknown]

NARRATIVE: CASE EVENT DATE: 20130719
